FAERS Safety Report 8219771-1 (Version None)
Quarter: 2012Q1

REPORT INFORMATION
  Report Type: 
  Country: None (occurrence: None)
  Receive Date: 20120319
  Receipt Date: 20120316
  Transmission Date: 20120608
  Serious: No
  Sender: FDA-Public Use
  Company Number: US-PFIZER INC-2012070148

PATIENT
  Sex: Male
  Weight: 90.703 kg

DRUGS (6)
  1. SIMVASTATIN [Concomitant]
     Indication: BLOOD CHOLESTEROL INCREASED
     Dosage: 40 MG, DAILY
  2. LOSARTAN POTASSIUM AND HYDROCHLOROTHIAZIDE [Concomitant]
     Indication: HYPERTENSION
     Dosage: 25/100 MG, DAILY
  3. BACTRIM [Concomitant]
     Indication: POLLAKIURIA
     Dosage: 80/400 MG, DAILY
  4. TOVIAZ [Suspect]
     Indication: POLLAKIURIA
     Dosage: 4 MG, DAILY
     Route: 048
     Dates: start: 20120101
  5. TOVIAZ [Suspect]
     Indication: URINARY INCONTINENCE
     Dosage: 8 MG, DAILY
     Route: 048
  6. BACTRIM [Concomitant]
     Indication: URINARY INCONTINENCE

REACTIONS (2)
  - DRUG INEFFECTIVE [None]
  - PROCEDURAL PAIN [None]
